FAERS Safety Report 8613097-X (Version None)
Quarter: 2012Q3

REPORT INFORMATION
  Report Type: 
  Country: None (occurrence: None)
  Receive Date: 20120822
  Receipt Date: 20120727
  Transmission Date: 20120928
  Serious: Yes (Life-Threatening, Hospitalization)
  Sender: FDA-Public Use
  Company Number: JP-009507513-2012SP032460

PATIENT

DRUGS (26)
  1. REBETOL [Suspect]
     Dosage: 600 MG, QD
     Route: 048
     Dates: start: 20120329, end: 20120418
  2. REBETOL [Suspect]
     Dosage: 200 MG, QD
     Route: 048
     Dates: start: 20120502, end: 20120516
  3. MYSER (DIFLUPREDNATE) [Concomitant]
     Indication: RASH
     Dosage: 10 G, DAILY
     Route: 061
     Dates: start: 20120517
  4. REBETOL [Suspect]
     Dosage: 400 MG, QD
     Route: 048
     Dates: start: 20120419, end: 20120501
  5. REBETOL [Suspect]
     Dosage: UNK MG, ONCE
     Route: 048
     Dates: start: 20120517, end: 20120528
  6. ANTIVIRAL (UNSPECIFIED) [Suspect]
     Indication: HEPATITIS C
     Dosage: 2250 MG, QD
     Route: 048
     Dates: start: 20120329, end: 20120509
  7. TELAVIC [Suspect]
     Indication: HEPATITIS C
     Route: 048
     Dates: start: 20120510, end: 20120528
  8. LEVOCARNITINE HYDROCHLORIDE [Concomitant]
     Indication: PROPHYLAXIS
     Dosage: UPDATE (15JUN2012): FORMULATION: POR
     Route: 048
     Dates: start: 20120329
  9. PEG-INTRON [Suspect]
     Dosage: 1.5 ?G/KG, QW
     Route: 051
     Dates: start: 20120329, end: 20120529
  10. MYSER (CYCLOSERINE) [Concomitant]
     Indication: PRODUCT USED FOR UNKNOWN INDICATION
     Dosage: UPDATE (15JUN2012): 10 GM PER DAY AS NEEDED
     Route: 065
     Dates: start: 20120517
  11. FERROUS SULFATE TAB [Concomitant]
     Dosage: 2 DF, ONCE
     Route: 048
     Dates: end: 20120528
  12. LOCOID [Concomitant]
     Indication: DRUG ERUPTION
     Dosage: UPDATE (15JUN2012)
     Route: 065
     Dates: start: 20120402
  13. L CARTIN [Concomitant]
     Indication: PROPHYLAXIS
     Dosage: 900 MG, ONCE
     Route: 048
     Dates: start: 20120329
  14. PEG-INTRON [Suspect]
     Dosage: 1.5 MICROGRAM PER KILOGRAM, PER WEEK
     Route: 051
     Dates: start: 20120329, end: 20120528
  15. FERROUS SULFATE TAB [Concomitant]
     Indication: PROPHYLAXIS
     Dosage: UPDATE (15JUN2012): FORMULATION: POR
     Route: 048
     Dates: start: 20120329
  16. LOCOID [Concomitant]
     Route: 061
     Dates: start: 20120402, end: 20120528
  17. ALLOPURINOL [Concomitant]
     Indication: HYPERURICAEMIA
     Dosage: UPDATE (15JUN2012)
     Route: 048
     Dates: start: 20120419, end: 20120419
  18. L CARTIN [Concomitant]
     Route: 048
     Dates: end: 20120528
  19. MYSER (DIFLUPREDNATE) [Concomitant]
     Dosage: 10 G, ONCE
     Route: 061
     Dates: start: 20120528
  20. PEG-INTRON [Suspect]
     Dosage: UNK
  21. ANTIVIRAL (UNSPECIFIED) [Suspect]
     Dosage: 1500 MG, QD
     Route: 048
     Dates: start: 20120510, end: 20120529
  22. TELAVIC [Suspect]
     Dosage: 2250 MG, ONCE
     Route: 048
     Dates: start: 20120329, end: 20120509
  23. ALLEGRA [Concomitant]
     Indication: PROPHYLAXIS
     Dosage: UPDATE (15JUN2012): FORMULATION: POR, CUMULATIVE DOSE: 480 MG
     Route: 048
     Dates: start: 20120330, end: 20120418
  24. TALION (BEPOTASTINE BESYLATE) [Concomitant]
     Indication: DRUG ERUPTION
     Dosage: UPDATE (15JUN2012)
     Route: 048
     Dates: start: 20120402
  25. TALION (BEPOTASTINE BESYLATE) [Concomitant]
     Dosage: 20 MG, ONCE
     Route: 048
     Dates: start: 20120402, end: 20120528
  26. ALLOPURINOL [Concomitant]
     Route: 048
     Dates: end: 20120524

REACTIONS (2)
  - STEVENS-JOHNSON SYNDROME [None]
  - ENANTHEMA [None]
